FAERS Safety Report 4432232-0 (Version None)
Quarter: 2004Q3

REPORT INFORMATION
  Report Type: 
  Country: None (occurrence: None)
  Receive Date: 20040819
  Receipt Date: 20040810
  Transmission Date: 20050211
  Serious: Yes (Other)
  Sender: FDA-Public Use
  Company Number: 200413945BCC

PATIENT
  Sex: Female

DRUGS (1)
  1. MILK OF MAGNESIA TAB [Suspect]
     Dosage: ORAL
     Route: 048

REACTIONS (1)
  - FAECES DISCOLOURED [None]
